FAERS Safety Report 19864773 (Version 2)
Quarter: 2021Q4

REPORT INFORMATION
  Report Type: Spontaneous
  Country: PL (occurrence: PL)
  Receive Date: 20210921
  Receipt Date: 20211001
  Transmission Date: 20220304
  Serious: Yes (Hospitalization, Other)
  Sender: FDA-Public Use
  Company Number: PL-MLMSERVICE-20210902-3089578-1

PATIENT
  Age: 66 Year
  Sex: Female

DRUGS (3)
  1. METHYLPREDNISOLONE [Suspect]
     Active Substance: METHYLPREDNISOLONE
     Indication: Systemic lupus erythematosus
     Dosage: 80 MG, 1X/DAY
  2. METHYLPREDNISOLONE [Suspect]
     Active Substance: METHYLPREDNISOLONE
     Dosage: 60 MG, 1X/DAY
  3. AMIODARONE [Concomitant]
     Active Substance: AMIODARONE
     Indication: Atrial fibrillation
     Dosage: UNK

REACTIONS (3)
  - Axonal neuropathy [Recovering/Resolving]
  - Quadriparesis [Recovering/Resolving]
  - Intensive care unit acquired weakness [Recovering/Resolving]
